FAERS Safety Report 20937586 (Version 1)
Quarter: 2022Q2

REPORT INFORMATION
  Report Type: Spontaneous
  Country: US (occurrence: None)
  Receive Date: 20220608
  Receipt Date: 20220608
  Transmission Date: 20220720
  Serious: Yes (Hospitalization)
  Sender: FDA-Public Use
  Company Number: None

PATIENT
  Age: 67 Year
  Sex: Male
  Weight: 92 kg

DRUGS (2)
  1. NIRMATRELVIR\RITONAVIR [Suspect]
     Active Substance: NIRMATRELVIR\RITONAVIR
     Indication: COVID-19
     Dosage: FREQUENCY : TWICE A DAY?
     Route: 048
     Dates: start: 20220529, end: 20220603
  2. APIXABAN [Concomitant]
     Active Substance: APIXABAN
     Dates: start: 20211130

REACTIONS (6)
  - Dyspnoea [None]
  - Melaena [None]
  - Hypoxia [None]
  - Anaemia [None]
  - Gastrointestinal haemorrhage [None]
  - Drug interaction [None]

NARRATIVE: CASE EVENT DATE: 20220602
